FAERS Safety Report 13584853 (Version 1)
Quarter: 2017Q2

REPORT INFORMATION
  Report Type: Spontaneous
  Country: US (occurrence: US)
  Receive Date: 20170526
  Receipt Date: 20170526
  Transmission Date: 20170830
  Serious: Yes (Hospitalization)
  Sender: FDA-Public Use
  Company Number: US-CORDEN PHARMA LATINA S.P.A.-US-2017COR000125

PATIENT
  Age: 13 Year
  Sex: Female

DRUGS (3)
  1. ETOPOSIDE. [Suspect]
     Active Substance: ETOPOSIDE
     Indication: OVARIAN GERM CELL TUMOUR MIXED
     Dosage: UNK, THREE CYCLES
  2. BLEOMYCIN [Suspect]
     Active Substance: BLEOMYCIN SULFATE
     Indication: OVARIAN GERM CELL TUMOUR MIXED
     Dosage: UNK, THREE CYCLES
  3. CISPLATIN. [Suspect]
     Active Substance: CISPLATIN
     Indication: OVARIAN GERM CELL TUMOUR MIXED
     Dosage: UNK, THREE CYCLES

REACTIONS (5)
  - Palpitations [Unknown]
  - Systemic inflammatory response syndrome [Unknown]
  - Tachycardia [Unknown]
  - Flushing [Unknown]
  - Hypotension [Unknown]
